FAERS Safety Report 18205476 (Version 3)
Quarter: 2020Q4

REPORT INFORMATION
  Report Type: Spontaneous
  Country: JP (occurrence: JP)
  Receive Date: 20200828
  Receipt Date: 20201031
  Transmission Date: 20210113
  Serious: Yes (Hospitalization, Other)
  Sender: FDA-Public Use
  Company Number: JP-SCIEGEN-2020SCILIT00254

PATIENT
  Age: 46 Year
  Sex: Male
  Weight: 58.8 kg

DRUGS (7)
  1. TRIHEXYPHENIDYL HYDROCHLORIDE. [Concomitant]
     Active Substance: TRIHEXYPHENIDYL HYDROCHLORIDE
     Indication: DYSTONIA
     Route: 065
  2. CLOMIPRAMINE HYDROCHLORIDE. [Concomitant]
     Active Substance: CLOMIPRAMINE HYDROCHLORIDE
     Indication: SCHIZOPHRENIA
     Route: 065
  3. LEVODOPA [Concomitant]
     Active Substance: LEVODOPA
     Indication: DYSTONIA
     Route: 065
  4. ARIPIPRAZOLE ORALLY DISINTEGRATING TABLETS [Suspect]
     Active Substance: ARIPIPRAZOLE
     Indication: SCHIZOPHRENIA
     Route: 065
  5. OLANZAPINE. [Suspect]
     Active Substance: OLANZAPINE
     Indication: SCHIZOPHRENIA
     Route: 065
  6. FLUVOXAMINE MALEATE. [Concomitant]
     Active Substance: FLUVOXAMINE MALEATE
     Indication: SCHIZOPHRENIA
     Route: 065
  7. BLONANSERIN [Concomitant]
     Active Substance: BLONANSERIN
     Indication: SCHIZOPHRENIA
     Route: 065

REACTIONS (3)
  - Cerebellar atrophy [Not Recovered/Not Resolved]
  - Cerebellar ataxia [Not Recovered/Not Resolved]
  - Torticollis [Not Recovered/Not Resolved]
